FAERS Safety Report 4323458-5 (Version None)
Quarter: 2004Q1

REPORT INFORMATION
  Report Type: 
  Country: None (occurrence: None)
  Receive Date: 20040325
  Receipt Date: 20040319
  Transmission Date: 20041129
  Serious: Yes (Other)
  Sender: FDA-Public Use
  Company Number: BR-ROCHE-362329

PATIENT
  Age: 48 Year
  Sex: Female
  Weight: 50 kg

DRUGS (3)
  1. RIVOTRIL [Suspect]
     Route: 048
     Dates: start: 20040316
  2. FLUOXETINE [Concomitant]
     Indication: DEPRESSION
     Route: 048
  3. COMPLEX B [Concomitant]
     Route: 048

REACTIONS (4)
  - COMMUNICATION DISORDER [None]
  - LIP DISCOLOURATION [None]
  - PALLOR [None]
  - UNRESPONSIVE TO PAIN STIMULI [None]
